FAERS Safety Report 11041056 (Version 2)
Quarter: 2015Q2

REPORT INFORMATION
  Report Type: Spontaneous
  Country: US (occurrence: US)
  Receive Date: 20150416
  Receipt Date: 20150525
  Transmission Date: 20150821
  Serious: No
  Sender: FDA-Public Use
  Company Number: US-JNJFOC-20140409205

PATIENT
  Sex: Male
  Weight: 99.79 kg

DRUGS (11)
  1. ASPIRIN. [Concomitant]
     Active Substance: ASPIRIN
     Indication: ANTICOAGULANT THERAPY
     Route: 048
     Dates: start: 20130119, end: 20130809
  2. XARELTO [Suspect]
     Active Substance: RIVAROXABAN
     Indication: CEREBROVASCULAR ACCIDENT PROPHYLAXIS
     Route: 048
     Dates: start: 20130119, end: 20130809
  3. LOPRESSOR [Concomitant]
     Active Substance: METOPROLOL TARTRATE
     Indication: BLOOD PRESSURE
     Route: 048
     Dates: start: 20130119, end: 20130809
  4. XARELTO [Suspect]
     Active Substance: RIVAROXABAN
     Indication: ATRIAL FIBRILLATION
     Route: 048
     Dates: start: 20130119, end: 20130809
  5. ASPIRIN. [Concomitant]
     Active Substance: ASPIRIN
     Indication: SPINAL OPERATION
     Route: 048
     Dates: start: 20130810
  6. ASPIRIN. [Concomitant]
     Active Substance: ASPIRIN
     Indication: SPINAL OPERATION
     Route: 048
     Dates: start: 20130119, end: 20130809
  7. ASPIRIN. [Concomitant]
     Active Substance: ASPIRIN
     Indication: ANTICOAGULANT THERAPY
     Route: 048
     Dates: start: 20130810
  8. LOPRESSOR [Concomitant]
     Active Substance: METOPROLOL TARTRATE
     Indication: CEREBROVASCULAR ACCIDENT
     Route: 048
     Dates: start: 20130119, end: 20130809
  9. ASPIRIN. [Concomitant]
     Active Substance: ASPIRIN
     Indication: SPINAL FUSION SURGERY
     Route: 048
     Dates: start: 20130810
  10. ASPIRIN. [Concomitant]
     Active Substance: ASPIRIN
     Indication: SPINAL FUSION SURGERY
     Route: 048
     Dates: start: 20130119, end: 20130809
  11. LOPRESSOR [Concomitant]
     Active Substance: METOPROLOL TARTRATE
     Indication: HEART RATE
     Route: 048
     Dates: start: 20130119, end: 20130809

REACTIONS (3)
  - Gingival bleeding [Recovered/Resolved]
  - Weight increased [Recovered/Resolved]
  - Weight decreased [Not Recovered/Not Resolved]

NARRATIVE: CASE EVENT DATE: 2013
